FAERS Safety Report 15732501 (Version 3)
Quarter: 2019Q2

REPORT INFORMATION
  Report Type: Spontaneous
  Country: US (occurrence: US)
  Receive Date: 20181217
  Receipt Date: 20190514
  Transmission Date: 20190711
  Serious: Yes (Death)
  Sender: FDA-Public Use
  Company Number: US-VIFOR (INTERNATIONAL) INC.-VIT-2018-10258

PATIENT
  Age: 68 Year
  Sex: Male
  Weight: 45.4 kg

DRUGS (8)
  1. LISINOPRIL-HYDROCHLORTHIAZIDE [Concomitant]
  2. FENOFIBRIC ACID. [Concomitant]
     Active Substance: FENOFIBRIC ACID
  3. VELTASSA [Suspect]
     Active Substance: PATIROMER
     Indication: HYPERKALAEMIA
     Route: 048
  4. FINASTERIDE. [Concomitant]
     Active Substance: FINASTERIDE
  5. NIFEDICAL XL [Concomitant]
     Active Substance: NIFEDIPINE
  6. ONGLYZA [Concomitant]
     Active Substance: SAXAGLIPTIN HYDROCHLORIDE
  7. GLIPIZIDE. [Concomitant]
     Active Substance: GLIPIZIDE
  8. CLONIDINE HCL [Concomitant]
     Active Substance: CLONIDINE HYDROCHLORIDE

REACTIONS (5)
  - Intestinal obstruction [Not Recovered/Not Resolved]
  - Cardiac disorder [Fatal]
  - Renal failure [Fatal]
  - Dysphagia [Not Recovered/Not Resolved]
  - Decreased appetite [Not Recovered/Not Resolved]

NARRATIVE: CASE EVENT DATE: 2018
